FAERS Safety Report 6505222-1 (Version None)
Quarter: 2009Q4

REPORT INFORMATION
  Report Type: 
  Country: None (occurrence: None)
  Receive Date: 20091218
  Receipt Date: 20091211
  Transmission Date: 20100525
  Serious: Yes (Hospitalization)
  Sender: FDA-Public Use
  Company Number: DE-ASTRAZENECA-2009SE32356

PATIENT

DRUGS (2)
  1. SEROQUEL [Suspect]
     Indication: PSYCHOTIC DISORDER
     Route: 048
     Dates: start: 20090301
  2. FORTECORTIN [Concomitant]

REACTIONS (4)
  - ANAEMIA [None]
  - NEOPLASM PROGRESSION [None]
  - NEUROPATHY PERIPHERAL [None]
  - TUMOUR ASSOCIATED FEVER [None]
